FAERS Safety Report 10088067 (Version 1)
Quarter: 2014Q2

REPORT INFORMATION
  Report Type: Spontaneous
  Country: IR (occurrence: IR)
  Receive Date: 20140421
  Receipt Date: 20140421
  Transmission Date: 20141212
  Serious: Yes (Hospitalization, Other)
  Sender: FDA-Public Use
  Company Number: IR-INDICUS PHARMA-000248

PATIENT
  Age: 28 Year
  Sex: Female

DRUGS (1)
  1. METFORMIN [Suspect]
     Indication: OVULATION INDUCTION

REACTIONS (3)
  - Ovarian adenoma [Unknown]
  - Off label use [Unknown]
  - Ectopic pregnancy [Unknown]
